FAERS Safety Report 20333549 (Version 1)
Quarter: 2022Q1

REPORT INFORMATION
  Report Type: Spontaneous
  Country: CN (occurrence: None)
  Receive Date: 20220113
  Receipt Date: 20220113
  Transmission Date: 20220424
  Serious: Yes (Other)
  Sender: FDA-Public Use
  Company Number: CN-Merck Healthcare KGaA-9283496

PATIENT
  Age: 42 Year
  Sex: Female
  Weight: 50 kg

DRUGS (1)
  1. EUTHYROX [Suspect]
     Active Substance: LEVOTHYROXINE SODIUM
     Indication: Post procedural hypoparathyroidism
     Route: 048
     Dates: start: 20200918, end: 20211125

REACTIONS (3)
  - Hypocalcaemia [Unknown]
  - Hypoaesthesia [Unknown]
  - Muscle spasms [Unknown]

NARRATIVE: CASE EVENT DATE: 20211115
